FAERS Safety Report 4620690-8 (Version None)
Quarter: 2005Q1

REPORT INFORMATION
  Report Type: 
  Country: None (occurrence: None)
  Receive Date: 20050325
  Receipt Date: 20050317
  Transmission Date: 20050727
  Serious: Yes (Disabling)
  Sender: FDA-Public Use
  Company Number: 2005-03-1443

PATIENT
  Age: 44 Year
  Sex: Male

DRUGS (3)
  1. PEG-INTRON [Suspect]
     Indication: HEPATITIS C
  2. RIBAVIRIN [Suspect]
     Indication: HEPATITIS C
  3. REBETOL [Suspect]
     Dosage: ORAL
     Route: 048

REACTIONS (3)
  - ABASIA [None]
  - HYPOAESTHESIA [None]
  - PARAESTHESIA [None]
